FAERS Safety Report 19377470 (Version 1)
Quarter: 2021Q2

REPORT INFORMATION
  Report Type: Spontaneous
  Country: SE (occurrence: SE)
  Receive Date: 20210605
  Receipt Date: 20210605
  Transmission Date: 20210717
  Serious: Yes (Other)
  Sender: FDA-Public Use
  Company Number: SE-TEVA-2021-SE-1918603

PATIENT
  Sex: Male

DRUGS (1)
  1. STESOLID [Suspect]
     Active Substance: DIAZEPAM
     Route: 065

REACTIONS (3)
  - Abdominal pain [Unknown]
  - Muscle disorder [Unknown]
  - Headache [Unknown]
